FAERS Safety Report 9869233 (Version 1)
Quarter: 2014Q1

REPORT INFORMATION
  Report Type: Report from Study
  Country: CA (occurrence: CA)
  Receive Date: 20140205
  Receipt Date: 20140205
  Transmission Date: 20141002
  Serious: Yes (Other)
  Sender: FDA-Public Use
  Company Number: CA-JNJFOC-20140117956

PATIENT
  Age: 41 Year
  Sex: Female

DRUGS (1)
  1. STELARA [Suspect]
     Indication: PSORIASIS
     Route: 058
     Dates: start: 20110201

REACTIONS (4)
  - Ovarian cyst [Unknown]
  - Nephrolithiasis [Unknown]
  - Polyp [Unknown]
  - Computerised tomogram abnormal [Unknown]
